FAERS Safety Report 5142894-0 (Version None)
Quarter: 2006Q4

REPORT INFORMATION
  Report Type: 
  Country: None (occurrence: None)
  Receive Date: 20061030
  Receipt Date: 20061017
  Transmission Date: 20070319
  Serious: Yes (Other)
  Sender: FDA-Public Use
  Company Number: 15020

PATIENT
  Age: 8 Year
  Sex: Male

DRUGS (3)
  1. VINORELBINE [Suspect]
     Indication: BRAIN STEM GLIOMA
     Dosage: 30 MG/M2 PER_CYCLE INJ
  2. VINORELBINE [Suspect]
     Indication: BRAIN STEM GLIOMA
     Dosage: 20 MG/M2 PER_CYCLE INJ
  3. UNSPECIFIED ANTIEMETICS [Concomitant]

REACTIONS (2)
  - FACIAL PALSY [None]
  - NEOPLASM PROGRESSION [None]
